FAERS Safety Report 5451782-1 (Version None)
Quarter: 2007Q3

REPORT INFORMATION
  Report Type: 
  Country: None (occurrence: None)
  Receive Date: 20070913
  Receipt Date: 20070904
  Transmission Date: 20080115
  Serious: Yes (Other)
  Sender: FDA-Public Use
  Company Number: US-MERCK-0707USA04862

PATIENT
  Sex: Female

DRUGS (1)
  1. FOSAMAX [Suspect]
     Route: 048

REACTIONS (9)
  - ARTHROPATHY [None]
  - DRUG HYPERSENSITIVITY [None]
  - FALL [None]
  - GINGIVITIS [None]
  - ORAL TORUS [None]
  - OSTEOMYELITIS [None]
  - TOOTH EXTRACTION [None]
  - TOOTHACHE [None]
  - UPPER LIMB FRACTURE [None]
